FAERS Safety Report 23201638 (Version 1)
Quarter: 2023Q4

REPORT INFORMATION
  Report Type: Spontaneous
  Country: US (occurrence: None)
  Receive Date: 20231117
  Receipt Date: 20231117
  Transmission Date: 20240109
  Serious: Yes (Death)
  Sender: FDA-Public Use
  Company Number: None

PATIENT
  Age: 90 Year
  Sex: Male

DRUGS (2)
  1. ENTECAVIR [Suspect]
     Active Substance: ENTECAVIR
     Indication: Hepatitis B
     Dates: start: 20220330, end: 20231117
  2. ENTECAVIR [Concomitant]
     Active Substance: ENTECAVIR
     Dates: start: 20220331, end: 20231117

REACTIONS (1)
  - Death [None]

NARRATIVE: CASE EVENT DATE: 20231117
